FAERS Safety Report 19125602 (Version 3)
Quarter: 2021Q4

REPORT INFORMATION
  Report Type: Spontaneous
  Country: US (occurrence: US)
  Receive Date: 20210412
  Receipt Date: 20211022
  Transmission Date: 20220303
  Serious: Yes (Hospitalization, Other)
  Sender: FDA-Public Use
  Company Number: US-GILEAD-2021-0524816

PATIENT
  Age: 73 Year
  Sex: Male
  Weight: 65.76 kg

DRUGS (84)
  1. TRUVADA [Suspect]
     Active Substance: EMTRICITABINE\TENOFOVIR DISOPROXIL FUMARATE
     Indication: HIV infection
     Dosage: UNK
     Route: 048
     Dates: start: 20140304, end: 20150102
  2. BIKTARVY [Concomitant]
     Active Substance: BICTEGRAVIR SODIUM\EMTRICITABINE\TENOFOVIR ALAFENAMIDE FUMARATE
  3. EPIVIR [Concomitant]
     Active Substance: LAMIVUDINE
  4. ISENTRESS [Concomitant]
     Active Substance: RALTEGRAVIR POTASSIUM
  5. JULUCA [Concomitant]
     Active Substance: DOLUTEGRAVIR SODIUM\RILPIVIRINE HYDROCHLORIDE
  6. NORVIR [Concomitant]
     Active Substance: RITONAVIR
  7. PREZISTA [Concomitant]
     Active Substance: DARUNAVIR ETHANOLATE
  8. ZIAGEN [Concomitant]
     Active Substance: ABACAVIR SULFATE
  9. ABACAVIR [Concomitant]
     Active Substance: ABACAVIR
  10. AMLODIPINE [Concomitant]
     Active Substance: AMLODIPINE BESYLATE
  11. AMOXICILLIN [Concomitant]
     Active Substance: AMOXICILLIN
  12. ASPIRIN [Concomitant]
     Active Substance: ASPIRIN
  13. ATORVASTATIN [Concomitant]
     Active Substance: ATORVASTATIN
  14. AZITHROMYCIN ANHYDROUS [Concomitant]
     Active Substance: AZITHROMYCIN ANHYDROUS
  15. BACTRIM DS [Concomitant]
     Active Substance: SULFAMETHOXAZOLE\TRIMETHOPRIM
  16. BICALUTAMIDE [Concomitant]
     Active Substance: BICALUTAMIDE
  17. TUMS [Concomitant]
     Active Substance: CALCIUM CARBONATE
  18. CARVEDILOL [Concomitant]
     Active Substance: CARVEDILOL
  19. CEFDINIR [Concomitant]
     Active Substance: CEFDINIR
  20. CEPHALEXIN [Concomitant]
     Active Substance: CEPHALEXIN
  21. CETIRIZINE [Concomitant]
     Active Substance: CETIRIZINE HYDROCHLORIDE
  22. AMMONIUM CHLORIDE\DEXTROMETHORPHAN\SODIUM CITRATE [Concomitant]
     Active Substance: AMMONIUM CHLORIDE\DEXTROMETHORPHAN\SODIUM CITRATE
  23. CHOLESTYRAMINE [Concomitant]
     Active Substance: CHOLESTYRAMINE
  24. CIPROFLOXACIN HYDROCHLORIDE [Concomitant]
     Active Substance: CIPROFLOXACIN HYDROCHLORIDE
  25. CYCLOBENZAPRINE [Concomitant]
     Active Substance: CYCLOBENZAPRINE
  26. CYPROHEPTADINE [Concomitant]
     Active Substance: CYPROHEPTADINE
  27. DIPHEN [DIPHENHYDRAMINE HYDROCHLORIDE] [Concomitant]
  28. DOXYCYCLINE [Concomitant]
     Active Substance: DOXYCYCLINE
  29. FAMOTIDINE [Concomitant]
     Active Substance: FAMOTIDINE
  30. IRON [Concomitant]
     Active Substance: IRON
  31. FLOMAX [Concomitant]
     Active Substance: TAMSULOSIN HYDROCHLORIDE
  32. FLUTICASONE [Concomitant]
     Active Substance: FLUTICASONE
  33. GABAPENTIN [Concomitant]
     Active Substance: GABAPENTIN
  34. HYDROCODONE [Concomitant]
     Active Substance: HYDROCODONE
  35. HYDROCORTISONE ACETATE [Concomitant]
     Active Substance: HYDROCORTISONE ACETATE
  36. IPRATROPIUM [Concomitant]
     Active Substance: IPRATROPIUM
  37. KETOCONAZOLE [Concomitant]
     Active Substance: KETOCONAZOLE
  38. LAMIVUDINE [Concomitant]
     Active Substance: LAMIVUDINE
  39. LEVAQUIN [Concomitant]
     Active Substance: LEVOFLOXACIN
  40. LEVOFLOXACIN [Concomitant]
     Active Substance: LEVOFLOXACIN
  41. LOSARTAN [Concomitant]
     Active Substance: LOSARTAN
  42. LUPRON DEPOT [Concomitant]
     Active Substance: LEUPROLIDE ACETATE
  43. MECLIZINE [Concomitant]
     Active Substance: MECLIZINE HYDROCHLORIDE
  44. MEGESTROL [Concomitant]
     Active Substance: MEGESTROL
  45. MELOXICAM [Concomitant]
     Active Substance: MELOXICAM
  46. METHYLPREDNISOLONE [Concomitant]
     Active Substance: METHYLPREDNISOLONE
  47. METOPROLOL [Concomitant]
     Active Substance: METOPROLOL
  48. METRONIDAZOLE [Concomitant]
     Active Substance: METRONIDAZOLE
  49. MIRTAZAPINE [Concomitant]
     Active Substance: MIRTAZAPINE
  50. MONTELUKAST [Concomitant]
     Active Substance: MONTELUKAST SODIUM
  51. MORPHINE [Concomitant]
     Active Substance: MORPHINE
  52. VITAMINS NOS [Concomitant]
     Active Substance: VITAMINS
  53. MUPIROCIN [Concomitant]
     Active Substance: MUPIROCIN
  54. NAPROXEN [Concomitant]
     Active Substance: NAPROXEN
  55. NEOMYCIN AND POLYMYXIN B SULFATES AND HYDROCORTISONE [Concomitant]
     Active Substance: HYDROCORTISONE\NEOMYCIN SULFATE\POLYMYXIN B SULFATE
  56. NEXIUM I.V. [Concomitant]
     Active Substance: ESOMEPRAZOLE SODIUM
  57. NITROSTAT [Concomitant]
     Active Substance: NITROGLYCERIN
  58. NYSTATIN [Concomitant]
     Active Substance: NYSTATIN
  59. OFLOXACIN [Concomitant]
     Active Substance: OFLOXACIN
  60. ONDANSETRON [Concomitant]
     Active Substance: ONDANSETRON
  61. OXYCODONE [Concomitant]
     Active Substance: OXYCODONE
  62. PANTOPRAZOLE [Concomitant]
     Active Substance: PANTOPRAZOLE
  63. PRAVASTATIN [Concomitant]
     Active Substance: PRAVASTATIN
  64. PREDNISONE [Concomitant]
     Active Substance: PREDNISONE
  65. PREPOPIK [Concomitant]
     Active Substance: ANHYDROUS CITRIC ACID\MAGNESIUM OXIDE\SODIUM PICOSULFATE
  66. PREVALITE [Concomitant]
     Active Substance: CHOLESTYRAMINE
  67. PROMETHEGAN [Concomitant]
     Active Substance: PROMETHAZINE HYDROCHLORIDE
  68. FLUTICASONE PROPIONATE [Concomitant]
     Active Substance: FLUTICASONE PROPIONATE
  69. RESINOL [Concomitant]
     Active Substance: PETROLATUM\RESORCINOL
  70. SMZ (CO) [Concomitant]
  71. STIOLTO RESPIMAT [Concomitant]
     Active Substance: OLODATEROL HYDROCHLORIDE\TIOTROPIUM BROMIDE MONOHYDRATE
  72. TAMSULOSIN [Concomitant]
     Active Substance: TAMSULOSIN
  73. TERBINAFINE [Concomitant]
     Active Substance: TERBINAFINE
  74. TRAMADOL [Concomitant]
     Active Substance: TRAMADOL
  75. TRIUMEQ [Concomitant]
     Active Substance: ABACAVIR SULFATE\DOLUTEGRAVIR SODIUM\LAMIVUDINE
  76. ACLIDINIUM BROMIDE [Concomitant]
     Active Substance: ACLIDINIUM BROMIDE
  77. VALACYCLOVIR [Concomitant]
     Active Substance: VALACYCLOVIR HYDROCHLORIDE
  78. VANCOMYCIN [Concomitant]
     Active Substance: VANCOMYCIN
  79. VITAMIN B1 [Concomitant]
     Active Substance: THIAMINE HYDROCHLORIDE
  80. VITAMIN D3 [Concomitant]
     Active Substance: CHOLECALCIFEROL
  81. XGEVA [Concomitant]
     Active Substance: DENOSUMAB
  82. XOPENEX [Concomitant]
     Active Substance: LEVALBUTEROL HYDROCHLORIDE
  83. XTANDI [Concomitant]
     Active Substance: ENZALUTAMIDE
  84. FLUCONAZOLE [Concomitant]
     Active Substance: FLUCONAZOLE

REACTIONS (13)
  - Acute kidney injury [Recovered/Resolved]
  - End stage renal disease [Recovered/Resolved]
  - Chronic kidney disease [Not Recovered/Not Resolved]
  - Emotional distress [Not Recovered/Not Resolved]
  - Anhedonia [Not Recovered/Not Resolved]
  - Anxiety [Not Recovered/Not Resolved]
  - Pain [Not Recovered/Not Resolved]
  - Arteriovenous fistula site complication [Not Recovered/Not Resolved]
  - Amnesia [Not Recovered/Not Resolved]
  - Injury [Not Recovered/Not Resolved]
  - Gait disturbance [Not Recovered/Not Resolved]
  - Nerve injury [Not Recovered/Not Resolved]
  - Renal impairment [Unknown]

NARRATIVE: CASE EVENT DATE: 20150101
